FAERS Safety Report 11590368 (Version 1)
Quarter: 2015Q4

REPORT INFORMATION
  Report Type: Spontaneous
  Country: US (occurrence: US)
  Receive Date: 20151002
  Receipt Date: 20151002
  Transmission Date: 20160304
  Serious: Yes (Other)
  Sender: FDA-Public Use
  Company Number: US-TEVA-597296USA

PATIENT
  Age: 18 Year
  Sex: Female

DRUGS (1)
  1. ADDERALL [Suspect]
     Active Substance: AMPHETAMINE ASPARTATE\AMPHETAMINE SULFATE\DEXTROAMPHETAMINE SACCHARATE\DEXTROAMPHETAMINE SULFATE
     Route: 065
     Dates: start: 2001, end: 201509

REACTIONS (7)
  - Musculoskeletal stiffness [Unknown]
  - Muscle spasms [Unknown]
  - Restless legs syndrome [Unknown]
  - Influenza [Unknown]
  - Seizure [Unknown]
  - Epilepsy [Unknown]
  - Hypertension [Unknown]

NARRATIVE: CASE EVENT DATE: 201509
